FAERS Safety Report 21072151 (Version 1)
Quarter: 2022Q3

REPORT INFORMATION
  Report Type: Report from Study
  Country: CA (occurrence: CA)
  Receive Date: 20220712
  Receipt Date: 20220712
  Transmission Date: 20221027
  Serious: Yes (Hospitalization)
  Sender: FDA-Public Use
  Company Number: CA-HLS-202201270

PATIENT
  Sex: Male

DRUGS (1)
  1. CLOZARIL [Suspect]
     Active Substance: CLOZAPINE
     Indication: Product used for unknown indication
     Dosage: BREAK IN TREATMENT FROM AN UNKNOWN DATE. TREATMENT RESTARTED ON 29-JUN-2022.
     Route: 048
     Dates: start: 20200729

REACTIONS (1)
  - Therapy interrupted [Recovered/Resolved]
